FAERS Safety Report 14723462 (Version 1)
Quarter: 2018Q2

REPORT INFORMATION
  Report Type: Report from Study
  Country: CR (occurrence: CR)
  Receive Date: 20180405
  Receipt Date: 20180405
  Transmission Date: 20180711
  Serious: Yes (Other)
  Sender: FDA-Public Use
  Company Number: PHHY2018CR059632

PATIENT
  Age: 78 Year
  Sex: Female

DRUGS (1)
  1. CO-DIOVAN [Suspect]
     Active Substance: HYDROCHLOROTHIAZIDE\VALSARTAN
     Indication: PRODUCT USED FOR UNKNOWN INDICATION
     Dosage: (25 MG HYDROCHLOROTHIAZIDE/ 320 MG VALSARTAN), UNK
     Route: 065

REACTIONS (2)
  - Blood pressure increased [Unknown]
  - Infarction [Unknown]
